FAERS Safety Report 7908534-X (Version None)
Quarter: 2011Q4

REPORT INFORMATION
  Report Type: 
  Country: None (occurrence: None)
  Receive Date: 20111111
  Receipt Date: 20111107
  Transmission Date: 20120403
  Serious: Yes (Hospitalization)
  Sender: FDA-Public Use
  Company Number: PHHY2010US70766

PATIENT
  Sex: Female
  Weight: 61 kg

DRUGS (3)
  1. EXJADE [Suspect]
     Indication: SICKLE CELL ANAEMIA
     Dosage: 1250 MG, QD
     Route: 048
     Dates: start: 20100801
  2. EXJADE [Suspect]
     Dosage: 250 MG, TID
     Route: 048
  3. EXJADE [Suspect]
     Dosage: 1250 MG, EVERY OTHER DAY OR TWO DAYS
     Dates: start: 20100701

REACTIONS (4)
  - PNEUMONIA [None]
  - DRUG INTOLERANCE [None]
  - FEELING ABNORMAL [None]
  - ABDOMINAL DISCOMFORT [None]
